FAERS Safety Report 9997356 (Version 1)
Quarter: 2014Q1

REPORT INFORMATION
  Report Type: Spontaneous
  Country: FR (occurrence: FR)
  Receive Date: 20140311
  Receipt Date: 20140311
  Transmission Date: 20141002
  Serious: Yes (Other)
  Sender: FDA-Public Use
  Company Number: FR-TEVA-466670ISR

PATIENT
  Sex: Female

DRUGS (4)
  1. NAPROXEN SODIQUE 550MG [Suspect]
     Dosage: 550 MILLIGRAM DAILY;
     Route: 048
  2. OMEPRAZOLE 20MG [Concomitant]
     Dosage: 20 MILLIGRAM DAILY; DOSE NOT CHANGED
  3. NOVATREX [Concomitant]
     Dosage: ON WEDNESDAY
  4. SPECIAFOLDINE [Concomitant]
     Dosage: ON FRIDAY

REACTIONS (3)
  - Rheumatoid arthritis [Unknown]
  - Abdominal pain upper [Recovered/Resolved]
  - Constipation [Recovered/Resolved]
